FAERS Safety Report 10204771 (Version 1)
Quarter: 2014Q2

REPORT INFORMATION
  Report Type: Spontaneous
  Country: US (occurrence: US)
  Receive Date: 20140529
  Receipt Date: 20140529
  Transmission Date: 20141212
  Serious: Yes (Other)
  Sender: FDA-Public Use
  Company Number: US-ASTRAZENECA-2014SE35603

PATIENT
  Age: 80 Year
  Sex: Male
  Weight: 106.6 kg

DRUGS (4)
  1. PRILOSEC [Suspect]
     Indication: HYPERCHLORHYDRIA
     Route: 048
     Dates: start: 2007
  2. FLOMAX [Concomitant]
     Indication: PROSTATOMEGALY
     Route: 048
     Dates: start: 1995
  3. NORCO [Concomitant]
     Indication: PAIN
     Dosage: 5/325 MG Q6 HOURS PRN
     Route: 048
     Dates: start: 2004
  4. OTC VITAMINS [Concomitant]
     Route: 048

REACTIONS (2)
  - Chondropathy [Not Recovered/Not Resolved]
  - Arthralgia [Not Recovered/Not Resolved]
